FAERS Safety Report 12374978 (Version 3)
Quarter: 2016Q2

REPORT INFORMATION
  Report Type: Spontaneous
  Country: LT (occurrence: LT)
  Receive Date: 20160517
  Receipt Date: 20160610
  Transmission Date: 20160815
  Serious: Yes (Hospitalization, Other)
  Sender: FDA-Public Use
  Company Number: LT-ASTRAZENECA-2016SE52233

PATIENT
  Age: 12309 Day
  Sex: Female
  Weight: 83 kg

DRUGS (6)
  1. NSAIDS [Concomitant]
     Active Substance: UNSPECIFIED INGREDIENT
  2. DIURETICS [Concomitant]
     Active Substance: UNSPECIFIED INGREDIENT
  3. ACE INHIBITORS [Concomitant]
     Active Substance: UNSPECIFIED INGREDIENT
  4. BYDUREON [Suspect]
     Active Substance: EXENATIDE
     Indication: TYPE 2 DIABETES MELLITUS
     Dosage: 2.0MG UNKNOWN
     Route: 058
     Dates: start: 20151112, end: 20160505
  5. GLICLAZIDI MR [Concomitant]
     Indication: TYPE 2 DIABETES MELLITUS
     Dosage: 120.0MG UNKNOWN
     Route: 048
  6. METFORMINI [Concomitant]
     Indication: TYPE 2 DIABETES MELLITUS
     Dosage: 1GX3
     Route: 048

REACTIONS (3)
  - Enterovirus infection [Unknown]
  - Weight decreased [Unknown]
  - Pancreatitis [Recovered/Resolved]

NARRATIVE: CASE EVENT DATE: 20160103
